FAERS Safety Report 21010288 (Version 1)
Quarter: 2022Q2

REPORT INFORMATION
  Report Type: Spontaneous
  Country: US (occurrence: None)
  Receive Date: 20220626
  Receipt Date: 20220626
  Transmission Date: 20220721
  Serious: Yes (Death)
  Sender: FDA-Public Use
  Company Number: None

PATIENT
  Age: 8 Year
  Sex: Female
  Weight: 30.4 kg

DRUGS (4)
  1. CYTARABINE [Suspect]
     Active Substance: CYTARABINE
     Dates: end: 20220608
  2. DEXAMETHASONE [Suspect]
     Active Substance: DEXAMETHASONE
     Dates: end: 20220623
  3. ONCASPAR [Suspect]
     Active Substance: PEGASPARGASE
     Dosage: OTHER QUANTITY : 2650IU;?
     Dates: end: 20220611
  4. VINCRISTINE SULFATE [Suspect]
     Active Substance: VINCRISTINE SULFATE
     Dates: end: 20220623

REACTIONS (8)
  - Vomiting [None]
  - Abdominal pain [None]
  - Drug intolerance [None]
  - COVID-19 [None]
  - Blood pressure decreased [None]
  - Enterocolitis AIDS [None]
  - Cardio-respiratory arrest [None]
  - Blood culture positive [None]

NARRATIVE: CASE EVENT DATE: 20220624
